FAERS Safety Report 4875334-7 (Version None)
Quarter: 2006Q1

REPORT INFORMATION
  Report Type: 
  Country: None (occurrence: None)
  Receive Date: 20060109
  Receipt Date: 20051005
  Transmission Date: 20060701
  Serious: Yes (Hospitalization)
  Sender: FDA-Public Use
  Company Number: US-MERCK-0510USA04178

PATIENT
  Age: 72 Year
  Sex: Female
  Weight: 70 kg

DRUGS (13)
  1. VIOXX [Suspect]
     Indication: GOUT
     Route: 048
     Dates: start: 20010101, end: 20030601
  2. CATAPRES [Concomitant]
     Route: 065
  3. NORVASC [Concomitant]
     Route: 065
  4. ATENOLOL [Concomitant]
     Route: 065
  5. CLONIDINE HYDROCHLORIDE [Concomitant]
     Route: 065
  6. DYAZIDE [Concomitant]
     Route: 065
  7. ADALAT [Concomitant]
     Route: 065
  8. LOTENSIN [Concomitant]
     Route: 065
  9. COREG [Concomitant]
     Route: 065
  10. PREDNISONE [Concomitant]
     Route: 065
  11. QUININE [Concomitant]
     Route: 065
  12. FUROSEMIDE [Concomitant]
     Route: 065
  13. TRIAMTERENE [Concomitant]
     Route: 065

REACTIONS (9)
  - ATRIAL FIBRILLATION [None]
  - ATRIAL FLUTTER [None]
  - BRADYCARDIA [None]
  - CARDIAC FAILURE CONGESTIVE [None]
  - CARDIOVASCULAR DISORDER [None]
  - CHEST PAIN [None]
  - HYPERTENSION [None]
  - RENAL CYST [None]
  - VENTRICULAR HYPERTROPHY [None]
